FAERS Safety Report 24562979 (Version 5)
Quarter: 2025Q1

REPORT INFORMATION
  Report Type: Spontaneous
  Country: PT (occurrence: PT)
  Receive Date: 20241030
  Receipt Date: 20250225
  Transmission Date: 20250409
  Serious: Yes (Other)
  Sender: BIOGEN
  Company Number: None

PATIENT
  Age: 40 Year
  Sex: Female

DRUGS (6)
  1. TECFIDERA [Suspect]
     Active Substance: DIMETHYL FUMARATE
     Indication: Relapsing-remitting multiple sclerosis
     Dosage: 23 OCT - 7 DAYS 120MG 12/12H; THEN FOLLOWED BY 240MG 12/12H AND ON 20 NOV AGAIN 120MG 12/12H 7
     Route: 050
     Dates: start: 20231023, end: 20240930
  2. TECFIDERA [Suspect]
     Active Substance: DIMETHYL FUMARATE
     Dosage: 23 OCT -7 DAYS 120MG 12/12H; THEN FOLLOWED BY 240MG 12/12H AND ON 20 NOV AGAIN 120MG 12/12H 7
     Route: 050
     Dates: start: 20231030, end: 20240930
  3. OMEPRAZOLE [Concomitant]
     Active Substance: OMEPRAZOLE
     Indication: Product used for unknown indication
     Route: 050
  4. ESCITALOPRAM [Concomitant]
     Active Substance: ESCITALOPRAM OXALATE
     Indication: Product used for unknown indication
     Route: 050
  5. TRAZODONE HYDROCHLORIDE [Concomitant]
     Active Substance: TRAZODONE HYDROCHLORIDE
     Indication: Product used for unknown indication
     Route: 050
  6. MOLINAR [Concomitant]
     Indication: Product used for unknown indication
     Route: 050

REACTIONS (3)
  - White blood cell count decreased [Not Recovered/Not Resolved]
  - Lymphocyte count decreased [Not Recovered/Not Resolved]
  - Abdominal pain upper [Recovered/Resolved]

NARRATIVE: CASE EVENT DATE: 20231101
